FAERS Safety Report 8773928 (Version 2)
Quarter: 2012Q4

REPORT INFORMATION
  Report Type: 
  Country: FR (occurrence: FR)
  Receive Date: 20120910
  Receipt Date: 20120925
  Transmission Date: 20130627
  Serious: Yes (Hospitalization, Other)
  Sender: FDA-Public Use
  Company Number: FR-ABBOTT-12P-056-0975065-00

PATIENT
  Age: 20 Year
  Sex: Female

DRUGS (2)
  1. TARKA SR [Suspect]
     Indication: HYPERTENSION
     Route: 048
     Dates: start: 20110101
  2. CATAPRESSAN [Concomitant]
     Indication: HYPERTENSION
     Route: 048
     Dates: start: 20110101

REACTIONS (4)
  - Ascites [Recovered/Resolved]
  - Abdominal pain [Recovered/Resolved]
  - Vomiting [Unknown]
  - Systemic inflammatory response syndrome [Recovered/Resolved]
